FAERS Safety Report 9148743 (Version 1)
Quarter: 2013Q1

REPORT INFORMATION
  Report Type: Spontaneous
  Country: CN (occurrence: CN)
  Receive Date: 20130308
  Receipt Date: 20130308
  Transmission Date: 20140127
  Serious: Yes (Other)
  Sender: FDA-Public Use
  Company Number: CN-JNJFOC-20130300861

PATIENT
  Sex: Male
  Weight: 22 kg

DRUGS (2)
  1. IBUPROFEN [Suspect]
     Route: 048
  2. IBUPROFEN [Suspect]
     Indication: PYREXIA
     Dosage: 10ML, TWICE DAILY
     Route: 048
     Dates: start: 20121112, end: 20121112

REACTIONS (1)
  - Anaphylactoid reaction [Recovering/Resolving]
